FAERS Safety Report 21542078 (Version 1)
Quarter: 2022Q4

REPORT INFORMATION
  Report Type: Report from Study
  Country: CO (occurrence: CO)
  Receive Date: 20221102
  Receipt Date: 20221102
  Transmission Date: 20230113
  Serious: Yes (Hospitalization, Other)
  Sender: FDA-Public Use
  Company Number: CO-BRISTOL-MYERS SQUIBB COMPANY-2022-110753

PATIENT
  Age: 83 Year
  Sex: Female
  Weight: 74 kg

DRUGS (1)
  1. ORENCIA [Suspect]
     Active Substance: ABATACEPT
     Indication: Rheumatoid arthritis
     Dosage: DOSE : 250 MG/ML?FREQ : EVERY 35 DAYS
     Route: 042
     Dates: start: 20170216, end: 20221014

REACTIONS (2)
  - Intentional product use issue [Unknown]
  - Syncope [Not Recovered/Not Resolved]

NARRATIVE: CASE EVENT DATE: 20221014
